FAERS Safety Report 13422849 (Version 1)
Quarter: 2017Q2

REPORT INFORMATION
  Report Type: Spontaneous
  Country: US (occurrence: US)
  Receive Date: 20170410
  Receipt Date: 20170410
  Transmission Date: 20170830
  Serious: No
  Sender: FDA-Public Use
  Company Number: US-BAYER-2017-067968

PATIENT
  Age: 70 Year
  Sex: Female
  Weight: 59 kg

DRUGS (1)
  1. MIRALAX [Suspect]
     Active Substance: POLYETHYLENE GLYCOL 3350
     Indication: GASTROINTESTINAL DISORDER
     Route: 048

REACTIONS (7)
  - Dysgeusia [Unknown]
  - Product use issue [Unknown]
  - Diarrhoea [Unknown]
  - Product odour abnormal [Recovered/Resolved]
  - Nausea [Unknown]
  - Anal incontinence [Unknown]
  - Nausea [Unknown]

NARRATIVE: CASE EVENT DATE: 201704
